FAERS Safety Report 5116787-9 (Version None)
Quarter: 2006Q3

REPORT INFORMATION
  Report Type: 
  Country: None (occurrence: None)
  Receive Date: 20060928
  Receipt Date: 20060919
  Transmission Date: 20061208
  Serious: Yes (Hospitalization)
  Sender: FDA-Public Use
  Company Number: JP-SANOFI-SYNTHELABO-A01200607948

PATIENT
  Sex: Male
  Weight: 62 kg

DRUGS (3)
  1. CALCIUM LEVOFOLINATE [Concomitant]
     Dosage: 165 MG/BODY=100 MG/M2, INFUSION D1+2
     Route: 041
     Dates: start: 20060110, end: 20060111
  2. OXALIPLATIN [Suspect]
     Indication: LARGE INTESTINE CARCINOMA
     Dosage: 110 MG/BODY=66.7 MG/M2, INFUSION D1
     Route: 041
     Dates: start: 20060110, end: 20060110
  3. FLUOROURACIL [Suspect]
     Dosage: 525 MG/BODY=318.2 MG/M2 IN BOLUS THEN 800 MG/BODY=484.8 MG/M2 AS INFUSION, D1+2
     Route: 041
     Dates: start: 20060110, end: 20060111

REACTIONS (3)
  - NEUTROPENIA [None]
  - PYREXIA [None]
  - WHITE BLOOD CELL COUNT INCREASED [None]
